FAERS Safety Report 4474408-2 (Version None)
Quarter: 2004Q4

REPORT INFORMATION
  Report Type: 
  Country: None (occurrence: None)
  Receive Date: 20041014
  Receipt Date: 20041005
  Transmission Date: 20050328
  Serious: Yes (Hospitalization, Other)
  Sender: FDA-Public Use
  Company Number: US-JNJFOC-20040804838

PATIENT
  Sex: Male

DRUGS (26)
  1. DURAGESIC [Suspect]
     Route: 062
     Dates: start: 20040401, end: 20040701
  2. PREVACID [Concomitant]
  3. MIRALAX [Concomitant]
  4. NEURONTIN [Concomitant]
  5. SENOKOT [Concomitant]
     Dosage: 2 TABS/DAY
  6. AMICAR [Concomitant]
  7. MULTI-VITAMIN [Concomitant]
  8. MULTI-VITAMIN [Concomitant]
  9. MULTI-VITAMIN [Concomitant]
  10. MULTI-VITAMIN [Concomitant]
  11. MULTI-VITAMIN [Concomitant]
  12. MULTI-VITAMIN [Concomitant]
  13. MULTI-VITAMIN [Concomitant]
  14. MULTI-VITAMIN [Concomitant]
     Dosage: 1 TAB/DAY
  15. PERCOCET [Concomitant]
  16. PERCOCET [Concomitant]
     Dosage: 1-2 TAB EVERY 4 HOURS AS NEEDED
  17. TYLENOL [Concomitant]
     Dosage: 650 MG EVERY 4 HOURS AS NEEDED
  18. LACTULOSE [Concomitant]
     Dosage: 30 ML AS NEEDED
  19. MILK OF MAGNESIA TAB [Concomitant]
     Dosage: 30 ML AS NEEDED
  20. BISACODYL [Concomitant]
     Dosage: PR AS NEEDED
  21. FLORICET [Concomitant]
     Dosage: 1 TAB EVERY 4 HOURS AS NEEDED
  22. ZOFRAN [Concomitant]
     Dosage: EVERY 8 HOURS AS NEEDED
  23. AMBIEN [Concomitant]
     Dosage: 5 MG AS NEEDED
  24. SIMETHICONE [Concomitant]
     Dosage: 80 MG ONCE
  25. FLAGYL [Concomitant]
  26. ASCORBIC ACID [Concomitant]
     Dosage: 500 MG TAB

REACTIONS (7)
  - APHASIA [None]
  - ARTHRALGIA [None]
  - CONFUSIONAL STATE [None]
  - CONVULSION [None]
  - DYSPHAGIA [None]
  - MALIGNANT NEOPLASM PROGRESSION [None]
  - PANCYTOPENIA [None]
